FAERS Safety Report 10368050 (Version 1)
Quarter: 2014Q3

REPORT INFORMATION
  Report Type: Spontaneous
  Country: FR (occurrence: FR)
  Receive Date: 20140807
  Receipt Date: 20140807
  Transmission Date: 20150326
  Serious: Yes (Other)
  Sender: FDA-Public Use
  Company Number: FR-009507513-1408FRA000143

PATIENT
  Age: 82 Year
  Sex: Male

DRUGS (16)
  1. SERTRALINE ARROW [Suspect]
     Active Substance: SERTRALINE HYDROCHLORIDE
     Indication: PRODUCT USED FOR UNKNOWN INDICATION
     Dosage: 1 DF, QD
     Route: 048
     Dates: start: 20140516, end: 20140516
  2. LANSOYL [Concomitant]
     Active Substance: MINERAL OIL
     Dosage: 1 DF, QD
     Route: 048
  3. NORMACOL (STERCULIA) [Concomitant]
     Dosage: 1 DF, QD
     Route: 054
     Dates: start: 20140519, end: 20140527
  4. LEXOMIL ROCHE [Concomitant]
     Active Substance: BROMAZEPAM
     Dosage: 0.25 DF, QD
     Route: 048
  5. SPAGULAX MUCILAGE PUR [Concomitant]
     Dosage: 1 DF, TID
     Route: 048
     Dates: start: 20140519, end: 20140530
  6. NORSET [Suspect]
     Active Substance: MIRTAZAPINE
     Indication: PRODUCT USED FOR UNKNOWN INDICATION
     Dosage: 15 MG, QD
     Route: 048
     Dates: start: 20140515, end: 20140516
  7. SOLIAN [Suspect]
     Active Substance: AMISULPRIDE
     Indication: PRODUCT USED FOR UNKNOWN INDICATION
     Dosage: 0.5 DF, QD
     Route: 048
     Dates: start: 20140515, end: 20140516
  8. CETIRIZINE HYDROCHLORIDE. [Concomitant]
     Active Substance: CETIRIZINE HYDROCHLORIDE
     Dosage: 10 MG, QD
     Route: 048
     Dates: start: 20140516, end: 20140519
  9. XATRAL LP [Concomitant]
     Active Substance: ALFUZOSIN
     Dosage: 1 DF, QD
     Route: 048
  10. DAFALGAN [Concomitant]
     Active Substance: ACETAMINOPHEN
     Dosage: 1 DF, TID
     Route: 048
  11. TRANSIPEG [Concomitant]
     Active Substance: POLYETHYLENE GLYCOL 3350
     Dosage: 2 DF, QD
     Route: 048
  12. ATARAX [Concomitant]
     Active Substance: HYDROXYZINE\HYDROXYZINE HYDROCHLORIDE
     Dosage: 0.5 DF, QID
     Route: 048
     Dates: start: 20140516
  13. SOLU-MEDROL [Concomitant]
     Active Substance: METHYLPREDNISOLONE SODIUM SUCCINATE
     Dosage: UNK
     Route: 030
     Dates: start: 20140516, end: 20140516
  14. ZOLPIDEM [Suspect]
     Active Substance: ZOLPIDEM\ZOLPIDEM TARTRATE
     Indication: PRODUCT USED FOR UNKNOWN INDICATION
     Dosage: 10 MG, QD
     Route: 048
     Dates: start: 20140515, end: 20140516
  15. SEROPLEX [Concomitant]
     Active Substance: ESCITALOPRAM OXALATE
     Dosage: 1 DF, QD
     Route: 048
     Dates: start: 20140516, end: 20140516
  16. SOLUPRED [Concomitant]
     Active Substance: PREDNISOLONE
     Dosage: 3 DF, QD
     Route: 048
     Dates: start: 20140517, end: 20140517

REACTIONS (3)
  - Palatal oedema [Recovered/Resolved]
  - Dyspnoea [None]
  - Respiratory disorder [Recovered/Resolved]

NARRATIVE: CASE EVENT DATE: 20140516
